FAERS Safety Report 24017582 (Version 1)
Quarter: 2024Q2

REPORT INFORMATION
  Report Type: Spontaneous
  Country: IL (occurrence: IL)
  Receive Date: 20240627
  Receipt Date: 20240627
  Transmission Date: 20240716
  Serious: Yes (Other)
  Sender: FDA-Public Use
  Company Number: IL-HBP-2024IL030923

PATIENT
  Sex: Female

DRUGS (2)
  1. AKYNZEO (NETUPITANT\PALONOSETRON) [Suspect]
     Active Substance: NETUPITANT\PALONOSETRON
     Indication: Product used for unknown indication
     Dosage: UNK, UNKNOWN
     Route: 065
  2. TEGRETOL [Concomitant]
     Active Substance: CARBAMAZEPINE
     Dosage: UNK, UNKNOWN

REACTIONS (1)
  - Epilepsy [Unknown]
